FAERS Safety Report 5079914-8 (Version None)
Quarter: 2006Q3

REPORT INFORMATION
  Report Type: 
  Country: None (occurrence: None)
  Receive Date: 20060720
  Receipt Date: 20050705
  Transmission Date: 20061208
  Serious: Yes (Hospitalization, Other)
  Sender: FDA-Public Use
  Company Number: 2005100245

PATIENT
  Age: 33 Year
  Sex: Male

DRUGS (6)
  1. CELEBREX [Suspect]
     Indication: ILL-DEFINED DISORDER
     Dosage: 400 MG (200 MG,2 IN 1 D)
     Dates: start: 20010522
  2. LIPITOR [Concomitant]
  3. ACTOS [Concomitant]
  4. NIASPAN [Concomitant]
  5. ZOCOR [Concomitant]
  6. ALTACE [Concomitant]

REACTIONS (2)
  - BLOOD PRESSURE INCREASED [None]
  - MYOCARDIAL INFARCTION [None]
